FAERS Safety Report 5475820-5 (Version None)
Quarter: 2007Q4

REPORT INFORMATION
  Report Type: 
  Country: None (occurrence: None)
  Receive Date: 20071003
  Receipt Date: 20070914
  Transmission Date: 20080405
  Serious: Yes (Disabling, Other)
  Sender: FDA-Public Use
  Company Number: B0480808A

PATIENT
  Sex: Female
  Weight: 150 kg

DRUGS (13)
  1. AVANDIA [Suspect]
     Dosage: 4MG PER DAY
     Dates: start: 20070117, end: 20070812
  2. DIAMICRON [Concomitant]
  3. PLAVIX [Concomitant]
     Dosage: 75MG PER DAY
  4. PERINDOPRIL ERBUMINE [Concomitant]
     Dosage: 5MG PER DAY
     Route: 065
  5. SERETIDE [Concomitant]
     Dosage: 2PUFF TWICE PER DAY
     Route: 055
  6. VENTOLIN [Concomitant]
     Route: 055
  7. VENTOLIN [Concomitant]
     Route: 055
  8. DIABEX [Concomitant]
     Route: 065
  9. DIPROSONE [Concomitant]
     Route: 065
  10. PANAMAX [Concomitant]
  11. UNKNOWN [Concomitant]
     Route: 065
  12. AUGMENTIN '125' [Concomitant]
  13. DITROPAN [Concomitant]
     Dosage: 5MG TWICE PER DAY

REACTIONS (8)
  - CARDIAC FAILURE CONGESTIVE [None]
  - CHEST DISCOMFORT [None]
  - DYSPNOEA [None]
  - DYSPNOEA EXERTIONAL [None]
  - OEDEMA PERIPHERAL [None]
  - ORTHOPNOEA [None]
  - PULMONARY OEDEMA [None]
  - WEIGHT INCREASED [None]
